FAERS Safety Report 17194022 (Version 1)
Quarter: 2019Q4

REPORT INFORMATION
  Report Type: Report from Study
  Country: US (occurrence: US)
  Receive Date: 20191223
  Receipt Date: 20191223
  Transmission Date: 20200122
  Serious: Yes (Death, Hospitalization, Other)
  Sender: FDA-Public Use
  Company Number: US-AUROBINDO-AUR-APL-2019-105018

PATIENT
  Age: 73 Year
  Sex: Female

DRUGS (3)
  1. LOPERAMIDE [Suspect]
     Active Substance: LOPERAMIDE
     Indication: PRODUCT USED FOR UNKNOWN INDICATION
     Dosage: 32 NANOGRAM PER MILLLIITER
     Route: 065
  2. OXYCODONE [Suspect]
     Active Substance: OXYCODONE
     Indication: PRODUCT USED FOR UNKNOWN INDICATION
     Dosage: 100 NANOGRAM PER MILLLIITER
     Route: 065
  3. HYDROCODONE [Suspect]
     Active Substance: HYDROCODONE
     Indication: PRODUCT USED FOR UNKNOWN INDICATION
     Dosage: 17 NANOMOLE PER MILLILITRE
     Route: 065

REACTIONS (7)
  - Overdose [Fatal]
  - Cardiomegaly [Fatal]
  - Nephrosclerosis [Fatal]
  - Hepatic steatosis [Fatal]
  - Portal tract inflammation [Fatal]
  - Toxicity to various agents [Fatal]
  - Pulmonary oedema [Fatal]
